FAERS Safety Report 11628921 (Version 1)
Quarter: 2015Q4

REPORT INFORMATION
  Report Type: Spontaneous
  Country: US (occurrence: None)
  Receive Date: 20151013
  Receipt Date: 20151013
  Transmission Date: 20160304
  Serious: Yes (Disabling, Other)
  Sender: FDA-Public Use
  Company Number: None

PATIENT
  Age: 27 Year
  Sex: Male
  Weight: 86.18 kg

DRUGS (1)
  1. CIPROFLOXACIN 500 MG TEVA USA [Suspect]
     Active Substance: CIPROFLOXACIN
     Indication: URINARY TRACT INFECTION
     Route: 048

REACTIONS (10)
  - Insomnia [None]
  - Disturbance in attention [None]
  - Dry mouth [None]
  - Paranoia [None]
  - Confusional state [None]
  - Suicidal ideation [None]
  - Palpitations [None]
  - Anxiety [None]
  - Hallucination, visual [None]
  - Disorientation [None]

NARRATIVE: CASE EVENT DATE: 20151009
